FAERS Safety Report 11398389 (Version 1)
Quarter: 2015Q3

REPORT INFORMATION
  Report Type: Spontaneous
  Country: US (occurrence: US)
  Receive Date: 20150820
  Receipt Date: 20150820
  Transmission Date: 20151125
  Serious: Yes (Other)
  Sender: FDA-Public Use
  Company Number: US-JNJCP-30000298937

PATIENT
  Sex: Female

DRUGS (1)
  1. JOHNSONS PRODUCTS [Suspect]
     Active Substance: UNSPECIFIED INGREDIENT
     Indication: STRESS
     Dosage: THREE TO FOUR TIMES PER DAY
     Route: 048

REACTIONS (1)
  - Eating disorder [Unknown]
